FAERS Safety Report 16874920 (Version 3)
Quarter: 2019Q4

REPORT INFORMATION
  Report Type: Spontaneous
  Country: US (occurrence: US)
  Receive Date: 20191001
  Receipt Date: 20191120
  Transmission Date: 20200122
  Serious: Yes (Hospitalization)
  Sender: FDA-Public Use
  Company Number: US-JNJFOC-20190938357

PATIENT
  Sex: Male

DRUGS (1)
  1. RISPERDAL [Suspect]
     Active Substance: RISPERIDONE
     Indication: PRODUCT USED FOR UNKNOWN INDICATION
     Route: 065

REACTIONS (8)
  - Frustration tolerance decreased [Unknown]
  - Myocardial infarction [Unknown]
  - Haemoptysis [Unknown]
  - Agitation [Unknown]
  - Weight increased [Unknown]
  - Pericardial effusion [Unknown]
  - Brain injury [Unknown]
  - Heart rate increased [Unknown]
